FAERS Safety Report 20108221 (Version 1)
Quarter: 2021Q4

REPORT INFORMATION
  Report Type: Spontaneous
  Country: US (occurrence: US)
  Receive Date: 20211124
  Receipt Date: 20211124
  Transmission Date: 20220303
  Serious: No
  Sender: FDA-Public Use
  Company Number: US-KERYX BIOPHARMACEUTICALS INC.-2021US008312

PATIENT
  Sex: Female

DRUGS (4)
  1. AURYXIA [Suspect]
     Active Substance: TETRAFERRIC TRICITRATE DECAHYDRATE
     Indication: Hyperphosphataemia
     Dosage: 2 GRAM, (TABLETS) TID WITH EACH MEAL
     Route: 048
     Dates: start: 20200821
  2. AURYXIA [Suspect]
     Active Substance: TETRAFERRIC TRICITRATE DECAHYDRATE
     Dosage: 1 GRAM (TABLETS), TID WITH EACH MEAL
     Route: 048
     Dates: start: 20210310
  3. PROTONIX                           /00661201/ [Concomitant]
     Dosage: 2 UNK, QD
     Route: 048
  4. POTASSIUM CHLORIDE [Concomitant]
     Active Substance: POTASSIUM CHLORIDE
     Indication: Medical diet
     Dosage: UNK

REACTIONS (1)
  - Blood phosphorus decreased [Recovered/Resolved]
